FAERS Safety Report 10311697 (Version 1)
Quarter: 2014Q3

REPORT INFORMATION
  Report Type: Spontaneous
  Country: US (occurrence: None)
  Receive Date: 20140715
  Receipt Date: 20140715
  Transmission Date: 20150326
  Serious: Yes (Hospitalization, Other)
  Sender: FDA-Public Use
  Company Number: USW201406-000137

PATIENT
  Age: 60 Year
  Sex: Female
  Weight: 69.39 kg

DRUGS (1)
  1. APOKYN [Suspect]
     Active Substance: APOMORPHINE HYDROCHLORIDE
     Indication: PARKINSON^S DISEASE
     Dosage: 0.2 ML, EVERY 5 HRS, SUBCUTANEOUS
     Route: 058
     Dates: start: 20140428, end: 20140519

REACTIONS (3)
  - Coagulopathy [None]
  - Anaemia [None]
  - Injection site haemorrhage [None]

NARRATIVE: CASE EVENT DATE: 20140519
